FAERS Safety Report 18404949 (Version 1)
Quarter: 2020Q4

REPORT INFORMATION
  Report Type: Spontaneous
  Country: US (occurrence: US)
  Receive Date: 20201020
  Receipt Date: 20201020
  Transmission Date: 20210114
  Serious: No
  Sender: FDA-Public Use
  Company Number: None

PATIENT
  Age: 36 Year
  Sex: Male

DRUGS (1)
  1. REMDESIVIR. [Suspect]
     Active Substance: REMDESIVIR
     Route: 040
     Dates: start: 20201018, end: 20201019

REACTIONS (4)
  - Anxiety [None]
  - Feeling jittery [None]
  - Flushing [None]
  - Psychomotor hyperactivity [None]

NARRATIVE: CASE EVENT DATE: 20201018
